FAERS Safety Report 25997139 (Version 2)
Quarter: 2025Q4

REPORT INFORMATION
  Report Type: Spontaneous
  Country: EU (occurrence: EU)
  Receive Date: 20251104
  Receipt Date: 20251104
  Transmission Date: 20260117
  Serious: Yes (Other)
  Sender: SANDOZ
  Company Number: EU-PFIZER INC-2019195413

PATIENT
  Age: 81 Year
  Sex: Male

DRUGS (8)
  1. CARBOPLATIN [Suspect]
     Active Substance: CARBOPLATIN
     Indication: Lung adenocarcinoma stage IV
     Dosage: UNK UNK, QCY
     Route: 065
  2. DOCETAXEL [Suspect]
     Active Substance: DOCETAXEL
     Indication: Non-small cell lung cancer stage IV
     Dosage: 75 MG/M2, QCY, OVER A 3-WEEK CYCLE
     Route: 065
  3. DOCETAXEL [Suspect]
     Active Substance: DOCETAXEL
     Indication: Lung adenocarcinoma
  4. PEMETREXED [Suspect]
     Active Substance: PEMETREXED
     Indication: Lung adenocarcinoma stage IV
     Dosage: 500 MG/M2, CYCLIC (500 MG/M2, QCY)
     Route: 065
  5. PEMETREXED [Suspect]
     Active Substance: PEMETREXED
     Indication: Lung adenocarcinoma
  6. NINTEDANIB [Concomitant]
     Active Substance: NINTEDANIB
     Indication: Lung adenocarcinoma stage IV
     Dosage: 200 MG, QD
     Route: 065
  7. NINTEDANIB [Concomitant]
     Active Substance: NINTEDANIB
     Dosage: 200 MG, BID
     Route: 065
  8. NINTEDANIB [Concomitant]
     Active Substance: NINTEDANIB
     Indication: Non-small cell lung cancer stage IV
     Dosage: 400 MILLIGRAM DAILY
     Route: 048

REACTIONS (7)
  - Polymyositis [Unknown]
  - Dermatomyositis [Unknown]
  - Neoplasm progression [Unknown]
  - Performance status decreased [Recovered/Resolved]
  - Drug intolerance [Recovered/Resolved]
  - General physical health deterioration [Recovered/Resolved]
  - Disease progression [Recovered/Resolved]
